FAERS Safety Report 8429002-5 (Version None)
Quarter: 2012Q2

REPORT INFORMATION
  Report Type: 
  Country: None (occurrence: None)
  Receive Date: 20120612
  Receipt Date: 20120423
  Transmission Date: 20120825
  Serious: No
  Sender: FDA-Public Use
  Company Number: US-COVIDIEN/TYCO HEALTHCARE/MALLINCKRODT-T201201549

PATIENT
  Age: 55 Year
  Sex: Male

DRUGS (4)
  1. HEPARIN [Concomitant]
     Indication: ANTICOAGULANT THERAPY
     Dosage: 0.4 ML IN 4 ML BLOOD
     Route: 042
     Dates: start: 20120423, end: 20120423
  2. ULTRATAG [Suspect]
     Indication: RADIOISOTOPE SCAN
     Dosage: UNK
     Route: 042
     Dates: start: 20120423, end: 20120423
  3. TECHNETIUM TC 99M GENERATOR [Suspect]
     Indication: RADIOISOTOPE SCAN
     Dosage: 20 MCI, SINGLE
     Route: 042
     Dates: start: 20120423, end: 20120423
  4. PLASMA [Concomitant]
     Dosage: UNK
     Dates: start: 20120423, end: 20120423

REACTIONS (2)
  - PRURITUS [None]
  - RASH MACULAR [None]
